FAERS Safety Report 16983855 (Version 1)
Quarter: 2019Q4

REPORT INFORMATION
  Report Type: Spontaneous
  Country: US (occurrence: US)
  Receive Date: 20191101
  Receipt Date: 20191101
  Transmission Date: 20200122
  Serious: Yes (Death, Hospitalization)
  Sender: FDA-Public Use
  Company Number: US-VYERA PHARMACEUTICALS, LLC-2019VYE00055

PATIENT
  Age: 36 Year
  Sex: Male
  Weight: 56.69 kg

DRUGS (2)
  1. LEUCOVORIN. [Concomitant]
     Active Substance: LEUCOVORIN
  2. DARAPRIM [Suspect]
     Active Substance: PYRIMETHAMINE
     Indication: CENTRAL NERVOUS SYSTEM INFECTION
     Dosage: 50 MG, 1X/DAY
     Route: 048

REACTIONS (2)
  - Death [Fatal]
  - Central nervous system infection [Unknown]

NARRATIVE: CASE EVENT DATE: 201903
